FAERS Safety Report 16426268 (Version 1)
Quarter: 2019Q2

REPORT INFORMATION
  Report Type: Spontaneous
  Country: JP (occurrence: JP)
  Receive Date: 20190613
  Receipt Date: 20190613
  Transmission Date: 20190711
  Serious: Yes (Life-Threatening, Hospitalization, Other)
  Sender: FDA-Public Use
  Company Number: JP-JNJFOC-20190308856

PATIENT
  Age: 82 Year
  Sex: Female

DRUGS (11)
  1. XARELTO [Suspect]
     Active Substance: RIVAROXABAN
     Indication: THROMBOSIS PROPHYLAXIS
     Route: 048
     Dates: start: 20150408, end: 20190305
  2. ARTIST [Concomitant]
     Active Substance: CARVEDILOL
     Route: 048
     Dates: end: 20181106
  3. BEZATOL [Concomitant]
     Active Substance: BEZAFIBRATE
     Indication: HYPERLIPIDAEMIA
     Route: 048
     Dates: start: 20170607
  4. REZALTAS [Concomitant]
     Active Substance: AZELNIDIPINE\OLMESARTAN MEDOXOMIL
     Indication: HYPERTENSION
     Route: 048
     Dates: start: 20150408
  5. GASTER [Concomitant]
     Active Substance: FAMOTIDINE
     Indication: GASTRITIS
     Route: 048
     Dates: start: 20060615
  6. FEBURIC [Concomitant]
     Active Substance: FEBUXOSTAT
     Indication: HYPERURICAEMIA
     Route: 048
     Dates: start: 20180411
  7. ARTIST [Concomitant]
     Active Substance: CARVEDILOL
     Route: 048
     Dates: start: 20181205
  8. VITAMINS NOS [Concomitant]
     Active Substance: VITAMINS
     Indication: PERIPHERAL ARTERIAL OCCLUSIVE DISEASE
     Route: 048
     Dates: start: 20060124
  9. XARELTO [Suspect]
     Active Substance: RIVAROXABAN
     Indication: ATRIAL FIBRILLATION
     Route: 048
     Dates: start: 20150408, end: 20190305
  10. TERAZOSIN [Concomitant]
     Active Substance: TERAZOSIN\TERAZOSIN HYDROCHLORIDE
     Route: 048
     Dates: end: 20181205
  11. SUNRYTHM [Concomitant]
     Active Substance: PILSICAINIDE HYDROCHLORIDE
     Indication: ATRIAL FIBRILLATION
     Route: 048
     Dates: end: 20181205

REACTIONS (18)
  - Cardiac failure [Unknown]
  - Thrombotic cerebral infarction [Unknown]
  - Atrial fibrillation [Unknown]
  - Diarrhoea [Unknown]
  - Blood pressure inadequately controlled [Unknown]
  - Pain in extremity [Unknown]
  - Fall [Unknown]
  - Neurologic neglect syndrome [Unknown]
  - Cerebral haemorrhage [Recovered/Resolved with Sequelae]
  - Atrioventricular block first degree [Unknown]
  - Monoparesis [Unknown]
  - Arthralgia [Unknown]
  - Headache [Unknown]
  - Hemianopia homonymous [Unknown]
  - Musculoskeletal pain [Unknown]
  - Arthralgia [Unknown]
  - Oedema peripheral [Unknown]
  - Therapy cessation [Unknown]

NARRATIVE: CASE EVENT DATE: 20181107
